FAERS Safety Report 5944830-3 (Version None)
Quarter: 2008Q4

REPORT INFORMATION
  Report Type: 
  Country: None (occurrence: None)
  Receive Date: 20081107
  Receipt Date: 20081024
  Transmission Date: 20090506
  Serious: No
  Sender: FDA-Public Use
  Company Number: US-BAYER-200814187BCC

PATIENT
  Age: 84 Year
  Sex: Female
  Weight: 65 kg

DRUGS (2)
  1. ALEVE [Suspect]
     Indication: INTERVERTEBRAL DISC PROTRUSION
     Dosage: UNIT DOSE: 220 MG
     Route: 048
     Dates: start: 20081003, end: 20081024
  2. UNKNOWN DRUG [Concomitant]
     Indication: ANALGESIA

REACTIONS (1)
  - DIARRHOEA [None]
